FAERS Safety Report 13302322 (Version 2)
Quarter: 2017Q1

REPORT INFORMATION
  Report Type: Spontaneous
  Country: US (occurrence: US)
  Receive Date: 20170307
  Receipt Date: 20170309
  Transmission Date: 20170428
  Serious: Yes (Other)
  Sender: FDA-Public Use
  Company Number: US-PFIZER INC-2017096191

PATIENT
  Age: 44 Year
  Sex: Female
  Weight: 136 kg

DRUGS (35)
  1. NORPACE [Suspect]
     Active Substance: DISOPYRAMIDE PHOSPHATE
     Indication: HYPERTROPHIC CARDIOMYOPATHY
     Dosage: 200 MG, 2X/DAY
     Route: 048
     Dates: start: 201601, end: 201702
  2. MONTELUKAST SODIUM. [Concomitant]
     Active Substance: MONTELUKAST SODIUM
     Indication: ASTHMA
  3. LANSOPRAZOLE DR [Concomitant]
     Indication: GASTROOESOPHAGEAL REFLUX DISEASE
     Dosage: 30 MG, 1X/DAY, (ONE IN THE MORNING)
     Dates: start: 2016
  4. METOPROLOL SUCCINATE ER [Concomitant]
     Active Substance: METOPROLOL SUCCINATE
     Indication: HYPERTENSION
  5. FUROSEMIDE. [Concomitant]
     Active Substance: FUROSEMIDE
     Indication: ARRHYTHMIA
  6. SYMBICORT [Concomitant]
     Active Substance: BUDESONIDE\FORMOTEROL FUMARATE DIHYDRATE
     Dosage: 2 DF, 2X/DAY, (2 PILLS IN MORNING AND 2 PILLS IN NIGHT)
     Dates: start: 2010
  7. TIZANIDINE. [Concomitant]
     Active Substance: TIZANIDINE
     Indication: MUSCLE RELAXANT THERAPY
     Dosage: 3XDAY
     Dates: start: 201510
  8. CITRACAL + D3 [Concomitant]
     Indication: VITAMIN D DEFICIENCY
     Dosage: 1200 MG, 1X/DAY (IN PM)
     Dates: start: 2012
  9. ULTRABIOTIC /00753901/ [Concomitant]
     Indication: GASTROINTESTINAL DISORDER
     Dosage: 2 DF, 1X/DAY (IN THE MORNING)
     Dates: start: 2016
  10. LEVALBUTEROL /01419301/ [Concomitant]
     Indication: CHRONIC OBSTRUCTIVE PULMONARY DISEASE
     Dosage: NEBULIZER, AS NEEDED
     Dates: start: 2015
  11. VENTOLIN [Concomitant]
     Active Substance: ALBUTEROL SULFATE
     Indication: CHRONIC OBSTRUCTIVE PULMONARY DISEASE
     Dosage: RESCUE INHALER, AS NEEDED
     Route: 055
     Dates: start: 2006
  12. NORPACE [Suspect]
     Active Substance: DISOPYRAMIDE PHOSPHATE
     Indication: ARRHYTHMIA
  13. OXYCODONE [Concomitant]
     Active Substance: OXYCODONE
     Indication: LIMB INJURY
  14. OXYCODONE [Concomitant]
     Active Substance: OXYCODONE
     Indication: PAIN IN EXTREMITY
  15. SYMBICORT [Concomitant]
     Active Substance: BUDESONIDE\FORMOTEROL FUMARATE DIHYDRATE
     Indication: CHRONIC OBSTRUCTIVE PULMONARY DISEASE
     Dosage: 2 PUFFS, 2X/DAY
     Dates: start: 2016
  16. GABAPENTIN. [Concomitant]
     Active Substance: GABAPENTIN
     Indication: NEURALGIA
     Dosage: 100 MG, 3X/DAY (TWO IN MORNING AND ONE AT NIGHT)
     Dates: start: 2016
  17. METOPROLOL SUCCINATE ER [Concomitant]
     Active Substance: METOPROLOL SUCCINATE
     Indication: ARRHYTHMIA
  18. OXYCODONE [Concomitant]
     Active Substance: OXYCODONE
     Indication: PAIN
     Dosage: 10 MG, 3X/DAY
     Dates: start: 2016
  19. XARELTO [Concomitant]
     Active Substance: RIVAROXABAN
     Indication: CARDIAC DISORDER
  20. MONTELUKAST SODIUM. [Concomitant]
     Active Substance: MONTELUKAST SODIUM
     Indication: CHRONIC OBSTRUCTIVE PULMONARY DISEASE
     Dosage: 10 MG, 1X/DAY (ONCE IN THE MORNING)
     Dates: start: 2016
  21. FUROSEMIDE. [Concomitant]
     Active Substance: FUROSEMIDE
     Indication: HYPERTROPHIC CARDIOMYOPATHY
     Dosage: 60 MG, 1X/DAY (ONE AND HALF IN AFTERNOON)
     Dates: start: 2014
  22. FUROSEMIDE. [Concomitant]
     Active Substance: FUROSEMIDE
     Indication: HYPERTENSION
  23. POTASSIUM [Concomitant]
     Active Substance: POTASSIUM
     Dosage: 99 MG, 1X/DAY
  24. COGNITIVE AMINOS [Concomitant]
     Indication: ROUTINE HEALTH MAINTENANCE
     Dosage: 1 DF, 1X/DAY (IN THE MORNING)
     Dates: start: 2014
  25. GABAPENTIN. [Concomitant]
     Active Substance: GABAPENTIN
     Dosage: 300 MG, 2X/DAY (ONE IN MORNING AND ONE AT NIGHT)
     Dates: start: 2016
  26. OXYCODONE [Concomitant]
     Active Substance: OXYCODONE
     Indication: NECK PAIN
  27. OXYCODONE [Concomitant]
     Active Substance: OXYCODONE
     Indication: BACK PAIN
  28. PRAVASTATIN SODIUM. [Concomitant]
     Active Substance: PRAVASTATIN SODIUM
     Indication: BLOOD CHOLESTEROL
     Dosage: 20 MG, 1X/DAY (AT NIGHT)
     Dates: start: 2014
  29. SUPER PREMIUM 5-HTP [Concomitant]
     Indication: ROUTINE HEALTH MAINTENANCE
     Dosage: 2 DF, 1X/DAY (IN THE MORNING)
     Dates: start: 2014
  30. PREDNISONE. [Concomitant]
     Active Substance: PREDNISONE
     Indication: CHRONIC OBSTRUCTIVE PULMONARY DISEASE
     Dosage: AS NEEDED (DOSE CAN BE AS HIGH AS 60MG AND THEN GOES DOWN)
  31. NORPACE [Suspect]
     Active Substance: DISOPYRAMIDE PHOSPHATE
     Indication: ATRIAL FIBRILLATION
  32. SPIRIVA [Concomitant]
     Active Substance: TIOTROPIUM BROMIDE MONOHYDRATE
     Indication: CHRONIC OBSTRUCTIVE PULMONARY DISEASE
     Dosage: INHALER, 1X/DAY EVERY MORNING
     Route: 055
     Dates: start: 2010
  33. METOPROLOL SUCCINATE ER [Concomitant]
     Active Substance: METOPROLOL SUCCINATE
     Indication: HYPERTROPHIC CARDIOMYOPATHY
     Dosage: 50 MG, 1XDAY
     Dates: start: 2014
  34. XARELTO [Concomitant]
     Active Substance: RIVAROXABAN
     Indication: HYPERTROPHIC CARDIOMYOPATHY
     Dosage: 20 MG, 1X/DAY, (ONE IN THE MORNING)
     Dates: start: 2015
  35. VITAMIN D3 [Concomitant]
     Active Substance: CHOLECALCIFEROL
     Indication: VITAMIN D DEFICIENCY
     Dosage: 2000 IU, 1X/DAY
     Dates: start: 2012

REACTIONS (3)
  - Fatigue [Not Recovered/Not Resolved]
  - Arrhythmia [Not Recovered/Not Resolved]
  - Dyspnoea [Not Recovered/Not Resolved]

NARRATIVE: CASE EVENT DATE: 20170225
